FAERS Safety Report 6238837-9 (Version None)
Quarter: 2009Q2

REPORT INFORMATION
  Report Type: 
  Country: None (occurrence: None)
  Receive Date: 20090617
  Receipt Date: 20090617
  Transmission Date: 20091009
  Serious: Yes (Life-Threatening)
  Sender: FDA-Public Use
  Company Number: None

PATIENT
  Age: 50 Year
  Sex: Female
  Weight: 122.5 kg

DRUGS (9)
  1. HYDROMORPHONE HCL [Suspect]
     Indication: PAIN
     Dosage: 2-4 MG Q3H PRN IV
     Route: 042
     Dates: start: 20090504, end: 20090505
  2. XANAX [Suspect]
     Indication: ANXIETY
     Dosage: 1MG TID PO CHRONIC
     Route: 048
  3. REGLAN [Concomitant]
  4. CEPACOL [Concomitant]
  5. LR [Concomitant]
  6. DILAUDID [Concomitant]
  7. GABAPENTIN [Concomitant]
  8. DEPAKOTE [Concomitant]
  9. XANAX [Concomitant]

REACTIONS (7)
  - ASPIRATION [None]
  - HYPOTENSION [None]
  - INCORRECT DOSE ADMINISTERED [None]
  - OVERDOSE [None]
  - RESPIRATORY FAILURE [None]
  - UNEVALUABLE EVENT [None]
  - UNRESPONSIVE TO STIMULI [None]
